FAERS Safety Report 6057723-0 (Version None)
Quarter: 2009Q1

REPORT INFORMATION
  Report Type: 
  Country: None (occurrence: None)
  Receive Date: 20090129
  Receipt Date: 20090121
  Transmission Date: 20090719
  Serious: Yes (Hospitalization)
  Sender: FDA-Public Use
  Company Number: FR-ASTRAZENECA-2009CG00248

PATIENT
  Age: 26417 Day
  Sex: Male

DRUGS (10)
  1. ZESTORETIC [Suspect]
     Indication: HYPERTENSION
     Dosage: TABLET 20 + 12.5 MG ONCE DAILY
     Route: 048
     Dates: start: 20060101, end: 20080203
  2. ATENOLOL [Concomitant]
     Indication: HYPERTENSION
     Route: 048
     Dates: start: 19960101, end: 20080203
  3. ATENOLOL [Concomitant]
     Route: 048
     Dates: start: 20080301
  4. LOVENOX [Concomitant]
     Indication: COAGULOPATHY
     Dates: start: 20080106
  5. KARDEGIC [Concomitant]
     Route: 048
  6. PLAVIX [Concomitant]
     Route: 048
  7. FRACTAL [Concomitant]
     Route: 048
     Dates: end: 20080213
  8. TARDYFERON B9 [Concomitant]
     Route: 048
  9. IMOVANE [Concomitant]
     Route: 048
  10. CELESTAMINE TAB [Concomitant]
     Route: 048

REACTIONS (3)
  - GENERAL PHYSICAL HEALTH DETERIORATION [None]
  - HYPONATRAEMIA [None]
  - MALAISE [None]
